FAERS Safety Report 9196791 (Version 1)
Quarter: 2013Q1

REPORT INFORMATION
  Report Type: Spontaneous
  Country: US (occurrence: US)
  Receive Date: 20130328
  Receipt Date: 20130328
  Transmission Date: 20140127
  Serious: Yes (Other)
  Sender: FDA-Public Use
  Company Number: US-ASTRAZENECA-2013SE18778

PATIENT
  Age: 62 Year
  Sex: Female

DRUGS (3)
  1. NEXIUM [Suspect]
     Indication: EROSIVE OESOPHAGITIS
     Route: 048
     Dates: start: 2006
  2. NEXIUM [Suspect]
     Indication: OESOPHAGEAL STENOSIS
     Route: 048
     Dates: start: 2006
  3. NEXIUM [Suspect]
     Indication: OESOPHAGEAL ACHALASIA
     Route: 048
     Dates: start: 2006

REACTIONS (5)
  - Haemorrhage [Unknown]
  - Anaemia [Unknown]
  - Oesophageal stenosis [Unknown]
  - Intentional drug misuse [Unknown]
  - Off label use [Unknown]
